FAERS Safety Report 6289065-2 (Version None)
Quarter: 2009Q3

REPORT INFORMATION
  Report Type: 
  Country: None (occurrence: None)
  Receive Date: 20090728
  Receipt Date: 20090716
  Transmission Date: 20100115
  Serious: Yes (Hospitalization)
  Sender: FDA-Public Use
  Company Number: 20090622VANCO1035

PATIENT
  Age: 76 Year
  Sex: Female

DRUGS (10)
  1. VANCOMYCIN HCL [Suspect]
     Indication: CLOSTRIDIAL INFECTION
     Dosage: 500 MG (125 MG, 4 IN 1 D), ORAL
     Route: 048
     Dates: start: 20090323, end: 20090301
  2. LIPITOR [Concomitant]
  3. ZANTAC 150 [Concomitant]
  4. NEXIUM [Concomitant]
  5. PRENISOLONE EYE DROPS (PREDNISOLONE) [Concomitant]
  6. CENTRUM SILVER (CENTRUM SILVER /01292501/) [Concomitant]
  7. VITAMIN D (COLECALCIFEROL) [Concomitant]
  8. CALCIUM (CALCIUM) [Concomitant]
  9. FISH OIL (FISH OIL) [Concomitant]
  10. AMIODARONE HCL [Concomitant]

REACTIONS (7)
  - ANAEMIA [None]
  - BLOOD ALBUMIN DECREASED [None]
  - BLOOD POTASSIUM DECREASED [None]
  - CONDITION AGGRAVATED [None]
  - DIARRHOEA [None]
  - DRUG INEFFECTIVE [None]
  - SYNCOPE [None]
